FAERS Safety Report 10171971 (Version 2)
Quarter: 2014Q2

REPORT INFORMATION
  Report Type: Spontaneous
  Country: US (occurrence: US)
  Receive Date: 20140515
  Receipt Date: 20140530
  Transmission Date: 20141212
  Serious: Yes (Other)
  Sender: FDA-Public Use
  Company Number: US-PFIZER INC-2014131591

PATIENT
  Age: 67 Year
  Sex: Female
  Weight: 58.96 kg

DRUGS (1)
  1. ESTROGENS CONJUGATED [Suspect]
     Indication: VULVOVAGINAL DRYNESS
     Dosage: 0.3 MG, 1X/DAY
     Route: 048

REACTIONS (2)
  - Transient ischaemic attack [Unknown]
  - Cardiac disorder [Unknown]
